FAERS Safety Report 12905725 (Version 1)
Quarter: 2016Q4

REPORT INFORMATION
  Report Type: Report from Study
  Country: None (occurrence: AU)
  Receive Date: 20161103
  Receipt Date: 20161103
  Transmission Date: 20170207
  Serious: Yes (Other)
  Sender: FDA-Public Use
  Company Number: AU-ABBVIE-16K-008-1765903-00

PATIENT
  Sex: Female

DRUGS (1)
  1. HUMIRA [Suspect]
     Active Substance: ADALIMUMAB
     Indication: CROHN^S DISEASE
     Route: 058
     Dates: start: 20160427

REACTIONS (5)
  - Hiatus hernia [Unknown]
  - Hepatic function abnormal [Unknown]
  - Red blood cell count increased [Unknown]
  - Ovarian cyst [Unknown]
  - Ligament sprain [Unknown]

NARRATIVE: CASE EVENT DATE: 2016
